FAERS Safety Report 7634713-5 (Version None)
Quarter: 2011Q3

REPORT INFORMATION
  Report Type: 
  Country: None (occurrence: None)
  Receive Date: 20110725
  Receipt Date: 20110720
  Transmission Date: 20111222
  Serious: Yes (Hospitalization, Other)
  Sender: FDA-Public Use
  Company Number: FR-BRISTOL-MYERS SQUIBB COMPANY-15918246

PATIENT
  Age: 60 Year
  Sex: Male

DRUGS (7)
  1. IMOVANE [Concomitant]
  2. CARBIMAZOLE [Concomitant]
  3. ACEBUTOLOL [Concomitant]
  4. ACETAMINOPHEN W/ PROPOXYPHENE HCL [Concomitant]
  5. IRBESARTAN AND HYDROCHLOROTHIAZIDE [Suspect]
     Route: 048
     Dates: start: 20040101, end: 20100925
  6. LEXOMIL [Concomitant]
  7. CARTREX [Concomitant]

REACTIONS (2)
  - CONVULSION [None]
  - HYPONATRAEMIA [None]
